FAERS Safety Report 24341280 (Version 4)
Quarter: 2024Q4

REPORT INFORMATION
  Report Type: Spontaneous
  Country: BR (occurrence: BR)
  Receive Date: 20240919
  Receipt Date: 20241126
  Transmission Date: 20250115
  Serious: Yes (Hospitalization)
  Sender: BOEHRINGER INGELHEIM
  Company Number: BR-Komodo Health-a23aa0000039qC9AAI

PATIENT
  Age: 69 Year
  Sex: Female
  Weight: 66 kg

DRUGS (4)
  1. OLODATEROL HYDROCHLORIDE\TIOTROPIUM BROMIDE MONOHYDRATE [Suspect]
     Active Substance: OLODATEROL HYDROCHLORIDE\TIOTROPIUM BROMIDE MONOHYDRATE
     Indication: Dyspnoea
     Dosage: 2 CONSECUTIVE PUFFS A DAY (IN THE MORNING)
     Route: 055
     Dates: start: 2022, end: 2023
  2. OLODATEROL HYDROCHLORIDE\TIOTROPIUM BROMIDE MONOHYDRATE [Suspect]
     Active Substance: OLODATEROL HYDROCHLORIDE\TIOTROPIUM BROMIDE MONOHYDRATE
     Indication: Oxygen saturation abnormal
     Dosage: 2 CONSECUTIVE PUFFS A DAY (IN THE MORNING)
     Route: 055
     Dates: start: 202408
  3. OLODATEROL HYDROCHLORIDE\TIOTROPIUM BROMIDE MONOHYDRATE [Suspect]
     Active Substance: OLODATEROL HYDROCHLORIDE\TIOTROPIUM BROMIDE MONOHYDRATE
     Indication: Chronic obstructive pulmonary disease
  4. BECLOMETHASONE DIPROPIONATE\FORMOTEROL FUMARATE\GLYCOPYRROLATE [Suspect]
     Active Substance: BECLOMETHASONE DIPROPIONATE\FORMOTEROL FUMARATE\GLYCOPYRROLATE
     Indication: Chronic obstructive pulmonary disease
     Dosage: FORM STRENGTH:?100 MICROGRAMS + 6 MICROGRAMS+12,5 MICROGRAMS.?1 PUFF
     Route: 055
     Dates: end: 202408

REACTIONS (15)
  - Influenza [Unknown]
  - Pneumonia [Unknown]
  - Pneumonia [Recovered/Resolved]
  - Influenza [Recovered/Resolved]
  - Dyspnoea [Not Recovered/Not Resolved]
  - Intentional product use issue [Unknown]
  - Chronic obstructive pulmonary disease [Unknown]
  - Drug ineffective [Not Recovered/Not Resolved]
  - Dyspnoea [Not Recovered/Not Resolved]
  - Throat irritation [Recovering/Resolving]
  - Emphysema [Unknown]
  - Drug delivery system malfunction [Unknown]
  - Dysphonia [Unknown]
  - Vocal cord disorder [Unknown]
  - Fatigue [Unknown]

NARRATIVE: CASE EVENT DATE: 20220101
